FAERS Safety Report 19660822 (Version 1)
Quarter: 2021Q3

REPORT INFORMATION
  Report Type: Spontaneous
  Country: US (occurrence: US)
  Receive Date: 20210805
  Receipt Date: 20210805
  Transmission Date: 20211014
  Serious: No
  Sender: FDA-Public Use
  Company Number: US-AMNEAL PHARMACEUTICALS-2021-AMRX-01347

PATIENT
  Age: 37 Year
  Sex: Female
  Weight: 68.03 kg

DRUGS (4)
  1. FLUOXETINE [Concomitant]
     Active Substance: FLUOXETINE HYDROCHLORIDE
     Indication: PRODUCT USED FOR UNKNOWN INDICATION
     Dosage: UNK
     Route: 065
  2. BUPRENORPHINE TRANSDERMAL SYSTEM [Suspect]
     Active Substance: BUPRENORPHINE
     Dosage: 1 DOSAGE FORM, 1X/WEEK (FIRST BOX)
     Route: 062
  3. LIRICA [Concomitant]
     Active Substance: PREGABALIN
     Indication: PRODUCT USED FOR UNKNOWN INDICATION
     Dosage: UNK
     Route: 065
  4. BUPRENORPHINE TRANSDERMAL SYSTEM [Suspect]
     Active Substance: BUPRENORPHINE
     Indication: PAIN
     Dosage: 1 PATCH FOR 7 DAYS (MEDICATION FROM SECOND BOX)
     Route: 062
     Dates: start: 20210415, end: 20210416

REACTIONS (8)
  - Movement disorder [Recovering/Resolving]
  - Application site pain [Recovering/Resolving]
  - Dyskinesia [Recovering/Resolving]
  - Heart rate increased [Recovering/Resolving]
  - Anxiety [Recovering/Resolving]
  - Pruritus [Recovering/Resolving]
  - Panic attack [Recovering/Resolving]
  - Screaming [Recovering/Resolving]

NARRATIVE: CASE EVENT DATE: 20210416
